FAERS Safety Report 6316502-7 (Version None)
Quarter: 2009Q3

REPORT INFORMATION
  Report Type: 
  Country: None (occurrence: None)
  Receive Date: 20090820
  Receipt Date: 20090813
  Transmission Date: 20100115
  Serious: Yes (Hospitalization, Disabling)
  Sender: FDA-Public Use
  Company Number: FR-GILEAD-2009-0019752

PATIENT
  Sex: Female
  Weight: 42 kg

DRUGS (11)
  1. TRUVADA [Suspect]
     Indication: HIV INFECTION
     Dates: start: 20081114
  2. SUSTIVA [Suspect]
     Indication: HIV INFECTION
     Dates: start: 20081114
  3. FUZEON [Suspect]
     Indication: HIV INFECTION
     Dates: start: 20081114
  4. RIFATER [Suspect]
     Indication: TUBERCULOSIS
     Dates: start: 20081114
  5. MYAMBUTOL [Suspect]
     Indication: TUBERCULOSIS
     Dates: start: 20081114
  6. SPECIAFOLDINE [Concomitant]
     Indication: ANAEMIA
     Dates: start: 20081106
  7. BACTRIM [Concomitant]
     Indication: PROPHYLAXIS
     Dates: start: 20081114
  8. PIRILENE [Concomitant]
     Route: 048
     Dates: start: 20090203, end: 20090325
  9. MYAMBUTOL [Concomitant]
     Route: 048
     Dates: start: 20090203, end: 20090325
  10. RIMIFON [Concomitant]
     Route: 042
     Dates: start: 20090203, end: 20090325
  11. RIFAMPICIN [Concomitant]
     Route: 042
     Dates: start: 20090203, end: 20090325

REACTIONS (2)
  - IMMUNE RECONSTITUTION SYNDROME [None]
  - IMPAIRED GASTRIC EMPTYING [None]
